FAERS Safety Report 11686351 (Version 2)
Quarter: 2016Q4

REPORT INFORMATION
  Report Type: Spontaneous
  Country: US (occurrence: US)
  Receive Date: 20151030
  Receipt Date: 20161025
  Transmission Date: 20170206
  Serious: No
  Sender: FDA-Public Use
  Company Number: US-MYLANLABS-2015M1026816

PATIENT
  Age: 61 Year
  Sex: Female
  Weight: 84.81 kg

DRUGS (7)
  1. DIAZEPAM TABLETS USP [Suspect]
     Active Substance: DIAZEPAM
     Indication: DEPRESSION
     Dosage: 10 MG, HS
  2. ASPIRIN BAYER [Concomitant]
     Active Substance: ASPIRIN
     Dosage: 325 MG, QD
     Route: 065
  3. FISH OIL [Concomitant]
     Active Substance: FISH OIL
     Dosage: UNK
     Route: 065
  4. CALTRATE                           /00944201/ [Concomitant]
     Dosage: UNK
     Route: 065
  5. CLOPIDOGREL [Concomitant]
     Active Substance: CLOPIDOGREL BISULFATE
     Dosage: UNK
     Route: 065
  6. VITAMIN E                          /00110501/ [Suspect]
     Active Substance: TOCOPHEROL
     Dosage: UNK
     Route: 065
  7. DIAZEPAM TABLETS USP [Suspect]
     Active Substance: DIAZEPAM
     Indication: ANXIETY
     Dosage: 5 MG, AM
     Route: 065
     Dates: start: 201409

REACTIONS (7)
  - Pain in extremity [Not Recovered/Not Resolved]
  - Arthralgia [Not Recovered/Not Resolved]
  - Psychomotor hyperactivity [Not Recovered/Not Resolved]
  - Anxiety [Not Recovered/Not Resolved]
  - Gait disturbance [Not Recovered/Not Resolved]
  - Dyspnoea [Not Recovered/Not Resolved]
  - Palpitations [Not Recovered/Not Resolved]

NARRATIVE: CASE EVENT DATE: 201409
